FAERS Safety Report 23179224 (Version 7)
Quarter: 2024Q4

REPORT INFORMATION
  Report Type: Spontaneous
  Country: US (occurrence: US)
  Receive Date: 20231113
  Receipt Date: 20241216
  Transmission Date: 20250114
  Serious: Yes (Death, Hospitalization, Other)
  Sender: PFIZER
  Company Number: US-PFIZER INC-202300352842

PATIENT
  Age: 75 Year
  Sex: Male
  Weight: 107.95 kg

DRUGS (8)
  1. VYNDAMAX [Suspect]
     Active Substance: TAFAMIDIS
     Indication: Amyloidosis
     Dosage: 61 MG, 1X/DAY
     Route: 048
     Dates: start: 202305
  2. VYNDAMAX [Suspect]
     Active Substance: TAFAMIDIS
     Indication: Cardiac amyloidosis
     Dosage: 61MG CAPSULE ONCE A DAY
     Dates: start: 20231103
  3. TORSEMIDE [Concomitant]
     Active Substance: TORSEMIDE
     Indication: Amyloidosis
     Dosage: 100 MG
  4. KLOR-CON M20 [Concomitant]
     Active Substance: POTASSIUM CHLORIDE
     Dosage: UNK
  5. SPIRONOLACTONE [Concomitant]
     Active Substance: SPIRONOLACTONE
     Indication: Fluid imbalance
     Dosage: 25 MG
  6. SERTRALINE [Concomitant]
     Active Substance: SERTRALINE HYDROCHLORIDE
     Dosage: UNK
  7. TRELEGY ELLIPTA [Concomitant]
     Active Substance: FLUTICASONE FUROATE\UMECLIDINIUM BROMIDE\VILANTEROL TRIFENATATE
     Indication: Chronic obstructive pulmonary disease
     Dosage: UNK
  8. GABAPENTIN [Concomitant]
     Active Substance: GABAPENTIN
     Indication: Head discomfort
     Dosage: 100 MG, 3X/DAY

REACTIONS (7)
  - Death [Fatal]
  - Tracheostomy [Unknown]
  - Gastrostomy [Unknown]
  - General physical health deterioration [Unknown]
  - Dysphagia [Unknown]
  - Vocal cord disorder [Unknown]
  - Intentional product use issue [Unknown]
